FAERS Safety Report 6013924-9 (Version None)
Quarter: 2008Q4

REPORT INFORMATION
  Report Type: 
  Country: None (occurrence: None)
  Receive Date: 20081219
  Receipt Date: 20081215
  Transmission Date: 20090506
  Serious: Yes (Death)
  Sender: FDA-Public Use
  Company Number: FR-MERCK-0812FRA00059

PATIENT
  Age: 59 Year
  Sex: Male

DRUGS (5)
  1. PRIMAXIN [Suspect]
     Indication: SUPERINFECTION
     Route: 041
     Dates: start: 20050414, end: 20050422
  2. PYRAZINAMIDE [Suspect]
     Indication: PULMONARY TUBERCULOSIS
     Route: 048
     Dates: end: 20050422
  3. ISONIAZID [Suspect]
     Indication: PULMONARY TUBERCULOSIS
     Route: 048
     Dates: end: 20050422
  4. ISONIAZID AND PYRAZINAMIDE AND RIFAMPIN [Concomitant]
     Indication: PULMONARY TUBERCULOSIS
     Route: 048
     Dates: start: 20050204
  5. ETHAMBUTOL HYDROCHLORIDE [Concomitant]
     Route: 048
     Dates: start: 20080204

REACTIONS (1)
  - HEPATITIS FULMINANT [None]
